FAERS Safety Report 24548079 (Version 2)
Quarter: 2024Q4

REPORT INFORMATION
  Report Type: Report from Study
  Country: US (occurrence: US)
  Receive Date: 20241025
  Receipt Date: 20241111
  Transmission Date: 20250114
  Serious: Yes (Hospitalization, Other)
  Sender: ACADIA PHARMACEUTICALS
  Company Number: US-ACADIA PHARMACEUTICALS INC.-ACA-2024-PIM-006240

PATIENT
  Age: 81 Year
  Sex: Male

DRUGS (11)
  1. NUPLAZID [Suspect]
     Active Substance: PIMAVANSERIN TARTRATE
     Indication: Parkinson^s disease psychosis
     Dosage: 34 MILLIGRAM, QD
     Route: 048
     Dates: start: 20240930, end: 20241010
  2. NUPLAZID [Suspect]
     Active Substance: PIMAVANSERIN TARTRATE
     Indication: Parkinson^s disease
  3. AMLODIPINE [Concomitant]
     Active Substance: AMLODIPINE BESYLATE
  4. ASPIRIN [Concomitant]
     Active Substance: ASPIRIN
  5. ATORVASTATIN [Concomitant]
     Active Substance: ATORVASTATIN
  6. LOSARTAN [Concomitant]
     Active Substance: LOSARTAN
  7. SEROQUEL [Concomitant]
     Active Substance: QUETIAPINE FUMARATE
  8. SINEMET [Concomitant]
     Active Substance: CARBIDOPA\LEVODOPA
  9. BACLOFEN [Concomitant]
     Active Substance: BACLOFEN
  10. METFORMIN [Concomitant]
     Active Substance: METFORMIN HYDROCHLORIDE
  11. TOLTERODINE [Concomitant]
     Active Substance: TOLTERODINE

REACTIONS (9)
  - Anger [Recovered/Resolved]
  - Gait inability [Recovered/Resolved]
  - Paranoia [Recovered/Resolved]
  - Delusion [Recovered/Resolved]
  - Memory impairment [Recovered/Resolved]
  - Confusional state [Recovered/Resolved]
  - Hallucination [Recovered/Resolved]
  - Urine output increased [Not Recovered/Not Resolved]
  - Tremor [Not Recovered/Not Resolved]

NARRATIVE: CASE EVENT DATE: 20241009
